FAERS Safety Report 9366418 (Version 6)
Quarter: 2015Q1

REPORT INFORMATION
  Report Type: Spontaneous
  Country: US (occurrence: None)
  Receive Date: 20130620
  Receipt Date: 20150327
  Transmission Date: 20150721
  Serious: Yes (Hospitalization, Other)
  Sender: FDA-Public Use
  Company Number: US-000725

PATIENT
  Age: 53 Year
  Sex: Female

DRUGS (2)
  1. GATTEX [Suspect]
     Active Substance: TEDUGLUTIDE\WATER
     Indication: SHORT-BOWEL SYNDROME
     Dosage: 0.4 ML, STREN/VOLUM: 0.4 ML, DAILY SUBCUTANEOUS
     Route: 058
     Dates: start: 2013
  2. SOLUTIONS FOR PARENTERAL NUTRITION [Concomitant]
     Active Substance: AMINO ACIDS\DEXTROSE\ELECTROLYTES NOS

REACTIONS (20)
  - Head injury [None]
  - Fall [None]
  - Concussion [None]
  - Alopecia [None]
  - Gastrointestinal disorder [None]
  - Nasopharyngitis [None]
  - Central venous catheterisation [None]
  - Device related infection [None]
  - Abdominal distension [None]
  - Pain [None]
  - Somnolence [None]
  - Oedema peripheral [None]
  - Fatigue [None]
  - Weight decreased [None]
  - Condition aggravated [None]
  - Depression [None]
  - Diarrhoea [None]
  - Terminal state [None]
  - Blood potassium increased [None]
  - Sinusitis [None]

NARRATIVE: CASE EVENT DATE: 20130531
